FAERS Safety Report 4794281-2 (Version None)
Quarter: 2005Q4

REPORT INFORMATION
  Report Type: 
  Country: None (occurrence: None)
  Receive Date: 20051011
  Receipt Date: 20050929
  Transmission Date: 20060501
  Serious: Yes (Hospitalization)
  Sender: FDA-Public Use
  Company Number: FR-GLAXOSMITHKLINE-B0396359A

PATIENT
  Age: 56 Year
  Sex: Male

DRUGS (4)
  1. ONDANSETRON [Suspect]
     Dosage: 1AMP CYCLIC
     Route: 042
     Dates: start: 20050601, end: 20050824
  2. DETICENE [Suspect]
     Dosage: 700MGM2 CYCLIC
     Route: 042
     Dates: start: 20050601, end: 20050824
  3. GLUCOSE (G5) [Concomitant]
     Route: 042
     Dates: start: 20050601, end: 20050824
  4. PHYSIOLOGIC SERUM [Concomitant]
     Route: 042
     Dates: start: 20050601, end: 20050824

REACTIONS (5)
  - CHILLS [None]
  - EOSINOPHILIA [None]
  - LIVER FUNCTION TEST ABNORMAL [None]
  - LYMPHANGITIS [None]
  - PYREXIA [None]
